FAERS Safety Report 18171072 (Version 1)
Quarter: 2020Q3

REPORT INFORMATION
  Report Type: Report from Study
  Country: US (occurrence: US)
  Receive Date: 20200819
  Receipt Date: 20200819
  Transmission Date: 20201103
  Serious: Yes (Hospitalization, Other)
  Sender: FDA-Public Use
  Company Number: US-TEVA-2020-US-1815993

PATIENT
  Age: 64 Year
  Sex: Male
  Weight: 73 kg

DRUGS (11)
  1. LEVAQUIN [Concomitant]
     Active Substance: LEVOFLOXACIN
  2. CYTARABINE. [Suspect]
     Active Substance: CYTARABINE
     Indication: ACUTE MYELOID LEUKAEMIA
     Dosage: 200 MILLIGRAM DAILY;
     Route: 042
     Dates: start: 20161219
  3. PRED FORTE [Concomitant]
     Active Substance: PREDNISOLONE ACETATE
  4. DIFLUCAN [Concomitant]
     Active Substance: FLUCONAZOLE
  5. ZOVIRAX [Concomitant]
     Active Substance: ACYCLOVIR
  6. ZOFRAN [Concomitant]
     Active Substance: ONDANSETRON HYDROCHLORIDE
  7. AMBIEN [Concomitant]
     Active Substance: ZOLPIDEM TARTRATE
  8. IDARUBICIN [Suspect]
     Active Substance: IDARUBICIN
     Indication: ACUTE MYELOID LEUKAEMIA
     Dosage: 24 MILLIGRAM DAILY;
     Route: 042
     Dates: start: 20161219, end: 20161221
  9. ASP2215 [Suspect]
     Active Substance: GILTERITINIB
     Indication: ACUTE MYELOID LEUKAEMIA
     Dosage: 120 MILLIGRAM DAILY;
     Route: 048
     Dates: start: 20161222
  10. PROTONIX [Concomitant]
     Active Substance: PANTOPRAZOLE SODIUM
  11. MARINOL [Concomitant]
     Active Substance: DRONABINOL

REACTIONS (2)
  - Febrile neutropenia [Recovered/Resolved]
  - Febrile neutropenia [Recovered/Resolved with Sequelae]

NARRATIVE: CASE EVENT DATE: 20170223
